FAERS Safety Report 8595055-7 (Version None)
Quarter: 2012Q3

REPORT INFORMATION
  Report Type: 
  Country: None (occurrence: None)
  Receive Date: 20120815
  Receipt Date: 20120809
  Transmission Date: 20120928
  Serious: Yes (Other)
  Sender: FDA-Public Use
  Company Number: US-PFIZER INC-2012194774

PATIENT
  Age: 34 Year
  Sex: Female

DRUGS (8)
  1. PAMELOR [Concomitant]
     Dosage: 25 MG, UNK
     Route: 048
  2. ZOMIG [Concomitant]
     Dosage: 5 MG, UNK
     Route: 048
  3. DILAUDID [Concomitant]
     Dosage: 4 MG, UNK
     Route: 048
  4. AMBIEN [Concomitant]
     Dosage: 10 MG, UNK
     Route: 048
  5. FLEXERIL [Concomitant]
     Dosage: 10 MG, UNK
     Route: 048
  6. NAPROSYN [Concomitant]
     Dosage: 500 MG, UNK
     Route: 048
  7. LYRICA [Suspect]
     Dosage: 100 MG, 2X/DAY
  8. LYRICA [Suspect]
     Dosage: 150 MG, UNK
     Route: 048

REACTIONS (4)
  - HYPOAESTHESIA [None]
  - JOINT INJURY [None]
  - MUSCULOSKELETAL PAIN [None]
  - ROAD TRAFFIC ACCIDENT [None]
